FAERS Safety Report 7769112-9 (Version None)
Quarter: 2011Q3

REPORT INFORMATION
  Report Type: 
  Country: None (occurrence: None)
  Receive Date: 20110922
  Receipt Date: 20101207
  Transmission Date: 20111222
  Serious: Yes (Other)
  Sender: FDA-Public Use
  Company Number: US-ASTRAZENECA-2010SE57905

PATIENT
  Age: 61 Year
  Sex: Female
  Weight: 63.5 kg

DRUGS (10)
  1. DIAZEPAM [Concomitant]
     Indication: AFFECTIVE DISORDER
  2. KELEX [Concomitant]
     Indication: ANXIETY
  3. GAVESTAN [Concomitant]
     Indication: AFFECTIVE DISORDER
  4. CITALOPRAM HYDROBROMIDE [Concomitant]
     Indication: ANXIETY
  5. SEROQUEL XR [Suspect]
     Indication: SUICIDAL IDEATION
     Route: 048
  6. SEROQUEL XR [Suspect]
     Indication: PANIC ATTACK
     Route: 048
  7. SEROQUEL XR [Suspect]
     Indication: ANXIETY
     Route: 048
  8. SEROQUEL XR [Suspect]
     Indication: HOSTILITY
     Route: 048
  9. NORCO [Concomitant]
     Indication: PAIN
  10. FUROSEMIDE [Concomitant]
     Indication: SLEEP DISORDER

REACTIONS (7)
  - DRUG DOSE OMISSION [None]
  - ANXIETY [None]
  - INCORRECT DOSE ADMINISTERED [None]
  - HOSTILITY [None]
  - SUICIDAL IDEATION [None]
  - PANIC ATTACK [None]
  - FALL [None]
